FAERS Safety Report 11153391 (Version 1)
Quarter: 2015Q2

REPORT INFORMATION
  Report Type: Spontaneous
  Country: JP (occurrence: JP)
  Receive Date: 20150602
  Receipt Date: 20150602
  Transmission Date: 20150821
  Serious: Yes (Hospitalization)
  Sender: FDA-Public Use
  Company Number: PHHY2015JP065131

PATIENT
  Age: 92 Year
  Sex: Female

DRUGS (8)
  1. RIVASTACH [Suspect]
     Active Substance: RIVASTIGMINE
     Dosage: 1.9 MG/24 HOURS (4.5 MG DAILY RIVASTIGMINE BASE)
     Route: 062
  2. RIVASTACH [Suspect]
     Active Substance: RIVASTIGMINE
     Dosage: 4.6 MG/24H (09 MG DAILY RIVASTIGMINE BASE) (APPLICATION OF TWO 4.5 MG PATCHES)
     Route: 062
  3. RIVASTACH [Suspect]
     Active Substance: RIVASTIGMINE
     Dosage: 6.9 MG/24HOURS (13.5 MG DAILY RIVASTIGMINE BASE)
     Route: 062
  4. RIVASTACH [Suspect]
     Active Substance: RIVASTIGMINE
     Dosage: 1.9 MG/24 HOURS (4.5 MG DAILY RIVASTIGMINE BASE)
     Route: 062
  5. RIVASTACH [Suspect]
     Active Substance: RIVASTIGMINE
     Dosage: RIVASTACH IN 2 DIVIDED DOSES, IN THE MORNING AND AT NIGHT
     Route: 062
     Dates: start: 20150522
  6. RIVASTACH [Suspect]
     Active Substance: RIVASTIGMINE
     Dosage: 4.6 MG/24H (09 MG DAILY RIVASTIGMINE BASE) (APPLICATION OF TWO 4.5 MG PATCHES)
     Route: 062
  7. RIVASTACH [Suspect]
     Active Substance: RIVASTIGMINE
     Indication: DEMENTIA ALZHEIMER^S TYPE
     Dosage: 1.9 MG/24 HOURS (4.5 MG DAILY RIVASTIGMINE BASE)
     Route: 062
  8. RIVASTACH [Suspect]
     Active Substance: RIVASTIGMINE
     Dosage: 4.6 MG/24H (09 MG DAILY RIVASTIGMINE BASE) (APPLICATION OF TWO 4.5 MG PATCHES)
     Route: 062

REACTIONS (6)
  - Drug prescribing error [Unknown]
  - Aggression [Unknown]
  - Agitation [Unknown]
  - Decreased appetite [Unknown]
  - Fracture [Unknown]
  - Restlessness [Unknown]

NARRATIVE: CASE EVENT DATE: 20150522
